FAERS Safety Report 21289891 (Version 1)
Quarter: 2022Q3

REPORT INFORMATION
  Report Type: Spontaneous
  Country: US (occurrence: US)
  Receive Date: 20220902
  Receipt Date: 20220902
  Transmission Date: 20221026
  Serious: No
  Sender: FDA-Public Use
  Company Number: US-BRISTOL-MYERS SQUIBB COMPANY-2022-095768

PATIENT
  Age: 71 Year
  Sex: Male
  Weight: 95.25 kg

DRUGS (2)
  1. ONUREG [Suspect]
     Active Substance: AZACITIDINE
     Indication: Acute myeloid leukaemia
     Dosage: THERAPY GIVEN FOR DAILY 1 TO 14 DAYS FOR 28 DAY CYCLE
     Route: 048
     Dates: start: 202112
  2. AMIODARONE [Concomitant]
     Active Substance: AMIODARONE
     Indication: Product used for unknown indication
     Route: 065
     Dates: start: 202111

REACTIONS (1)
  - Haemoglobin decreased [Unknown]
